FAERS Safety Report 11676488 (Version 1)
Quarter: 2015Q4

REPORT INFORMATION
  Report Type: Spontaneous
  Country: US (occurrence: US)
  Receive Date: 20151027
  Receipt Date: 20151027
  Transmission Date: 20160304
  Serious: No
  Sender: FDA-Public Use
  Company Number: US-ELI_LILLY_AND_COMPANY-US201008000722

PATIENT
  Age: 48 Year
  Sex: Female

DRUGS (2)
  1. FORTEO [Suspect]
     Active Substance: TERIPARATIDE
     Dosage: 20 UG, DAILY (1/D)
  2. FORTEO [Suspect]
     Active Substance: TERIPARATIDE
     Indication: OSTEOPOROSIS
     Dosage: 20 UG, DAILY (1/D)
     Dates: start: 200903, end: 20100724

REACTIONS (14)
  - Cystitis [Not Recovered/Not Resolved]
  - Vaginal haemorrhage [Unknown]
  - Nasal congestion [Not Recovered/Not Resolved]
  - Drug dose omission [Not Recovered/Not Resolved]
  - Ear haemorrhage [Unknown]
  - Upper respiratory tract infection [Not Recovered/Not Resolved]
  - Pyrexia [Unknown]
  - Tonsillitis [Recovered/Resolved]
  - Urethral prolapse [Unknown]
  - Urethral disorder [Unknown]
  - Mixed connective tissue disease [Unknown]
  - White blood cell count increased [Unknown]
  - Abdominal pain upper [Unknown]
  - Anger [Unknown]

NARRATIVE: CASE EVENT DATE: 20100702
